FAERS Safety Report 9060294 (Version 1)
Quarter: 2013Q1

REPORT INFORMATION
  Report Type: Spontaneous
  Country: DE (occurrence: DE)
  Receive Date: 20130211
  Receipt Date: 20130211
  Transmission Date: 20140127
  Serious: Yes (Other)
  Sender: FDA-Public Use
  Company Number: DE-BAYER-2013-008662

PATIENT
  Age: 62 Year
  Sex: Male

DRUGS (9)
  1. AVALOX [Suspect]
     Indication: FEBRILE INFECTION
     Dosage: 400 MG, UNK
     Dates: start: 20121227, end: 20130103
  2. AVALOX [Interacting]
     Indication: FEBRILE INFECTION
  3. MARCUMAR [Interacting]
     Dosage: 3 DF, UNK
     Dates: start: 20120925, end: 20121227
  4. AMIODARON [Concomitant]
     Indication: ARRHYTHMIA PROPHYLAXIS
     Dosage: 200 MG, UNK
  5. RAMIPRIL [Concomitant]
     Dosage: 2.5 MG, QD
  6. HMG COA REDUCTASE INHIBITORS [Concomitant]
  7. PRAVASTATIN [Concomitant]
     Dosage: 40 MG, QD; EVENING
  8. METOPROLOL [Concomitant]
     Dosage: 95 MG, UNK
  9. TORASEMIDE [Concomitant]
     Dosage: 5 MG, QD

REACTIONS (4)
  - Prothrombin time prolonged [Recovered/Resolved]
  - International normalised ratio increased [Recovered/Resolved]
  - Drug interaction [None]
  - Haemorrhage subcutaneous [None]
